FAERS Safety Report 4757918-X (Version None)
Quarter: 2005Q3

REPORT INFORMATION
  Report Type: 
  Country: None (occurrence: None)
  Receive Date: 20050830
  Receipt Date: 20050816
  Transmission Date: 20060218
  Serious: Yes (Hospitalization)
  Sender: FDA-Public Use
  Company Number: 200507289

PATIENT
  Age: 46 Year
  Sex: Female
  Weight: 54.4316 kg

DRUGS (5)
  1. BOTOX [Suspect]
     Indication: GASTROINTESTINAL DISORDER
     Dosage: 200 UNITS ONCE IM
     Route: 030
     Dates: start: 20050812, end: 20050812
  2. LEXAPRO [Concomitant]
  3. XANAX [Concomitant]
  4. BENZODIAZEPINE [Concomitant]
  5. OPIATE [Concomitant]

REACTIONS (9)
  - CARDIAC FAILURE CONGESTIVE [None]
  - ELECTROCARDIOGRAM ST-T CHANGE [None]
  - FLUID OVERLOAD [None]
  - HYPOVOLAEMIA [None]
  - NAUSEA [None]
  - SINUS TACHYCARDIA [None]
  - TROPONIN I INCREASED [None]
  - VENTRICULAR HYPOKINESIA [None]
  - VOMITING [None]
